FAERS Safety Report 21263947 (Version 4)
Quarter: 2023Q1

REPORT INFORMATION
  Report Type: Spontaneous
  Country: IT (occurrence: IT)
  Receive Date: 20220829
  Receipt Date: 20230214
  Transmission Date: 20230418
  Serious: Yes (Death, Hospitalization, Other)
  Sender: FDA-Public Use
  Company Number: IT-NOVARTISPH-NVSC2022IT193364

PATIENT
  Age: 48 Year
  Sex: Female

DRUGS (18)
  1. OXALIPLATIN [Suspect]
     Active Substance: OXALIPLATIN
     Indication: Colorectal cancer
     Dosage: 130 MG
     Route: 042
     Dates: start: 20220613, end: 20220613
  2. FLUOROURACIL [Suspect]
     Active Substance: FLUOROURACIL
     Indication: Product used for unknown indication
     Dosage: 3180MG, TOTAL (3180 MG, 1X)
     Route: 042
     Dates: start: 20220613, end: 20220613
  3. FLUOROURACIL [Suspect]
     Active Substance: FLUOROURACIL
     Dosage: 530MG, TOTAL (530 MG, 1X)
     Route: 042
     Dates: start: 20220613
  4. LEUCOVORIN [Suspect]
     Active Substance: LEUCOVORIN
     Indication: Colorectal cancer
     Dosage: 400 MG, QD
     Route: 042
     Dates: start: 20220613, end: 20220613
  5. LEUCOVORIN [Suspect]
     Active Substance: LEUCOVORIN
     Indication: Lymphoma
     Dosage: 530 MG, QD
     Route: 058
     Dates: start: 20220613
  6. BEVACIZUMAB [Suspect]
     Active Substance: BEVACIZUMAB
     Indication: Colorectal cancer
     Dosage: UNK
     Route: 065
  7. REGORAFENIB [Suspect]
     Active Substance: REGORAFENIB
     Indication: Lymphoma
     Dosage: UNK (UNK)
     Route: 065
  8. REGORAFENIB [Suspect]
     Active Substance: REGORAFENIB
     Indication: Colorectal cancer
  9. ENOXAPARIN SODIUM [Concomitant]
     Active Substance: ENOXAPARIN SODIUM
     Indication: Thrombosis prophylaxis
     Dosage: UNK
     Route: 065
     Dates: start: 20220102, end: 20220703
  10. PROMAZINA [Concomitant]
     Active Substance: PROMAZINE
     Indication: Product used for unknown indication
     Dosage: UNK
     Route: 065
     Dates: start: 20220614, end: 20220624
  11. PANTOPRAZOLE [Concomitant]
     Active Substance: PANTOPRAZOLE
     Indication: Prophylaxis
     Dosage: UNK
     Route: 065
     Dates: start: 20220606, end: 20220617
  12. OMEPRAZOLE [Concomitant]
     Active Substance: OMEPRAZOLE
     Indication: Prophylaxis
     Dosage: UNK
     Route: 065
     Dates: start: 20210808, end: 20220606
  13. BISOPROLOL [Concomitant]
     Active Substance: BISOPROLOL
     Indication: Sinus tachycardia
     Dosage: UNK
     Route: 065
     Dates: start: 20220606, end: 20220715
  14. POTASSIUM CHLORIDE [Concomitant]
     Active Substance: POTASSIUM CHLORIDE
     Indication: Product used for unknown indication
     Dosage: UNK (SLOW K)
     Route: 065
     Dates: start: 20220511, end: 20220627
  15. ACETYLCYSTEINE [Concomitant]
     Active Substance: ACETYLCYSTEINE
     Indication: Detoxification
     Dosage: UNK
     Route: 065
     Dates: start: 20220708
  16. AMINO ACIDS\DEXTROSE\ELECTROLYTES NOS\SOYBEAN OIL [Concomitant]
     Active Substance: AMINO ACIDS\DEXTROSE\ELECTROLYTES NOS\SOYBEAN OIL
     Indication: Prophylaxis
     Dosage: UNK
     Route: 065
     Dates: start: 20220614, end: 20220624
  17. GABAPENTIN [Concomitant]
     Active Substance: GABAPENTIN
     Indication: Neuropathy peripheral
     Dosage: UNK
     Route: 065
     Dates: start: 20220511, end: 20220704
  18. CEFTRIAXONE [Concomitant]
     Active Substance: CEFTRIAXONE
     Indication: Product used for unknown indication
     Dosage: UNK
     Route: 065
     Dates: start: 20220701, end: 20220704

REACTIONS (10)
  - Platelet count decreased [Fatal]
  - Gastrointestinal haemorrhage [Fatal]
  - Dyspnoea [Fatal]
  - Hyponatraemia [Fatal]
  - Febrile neutropenia [Fatal]
  - Septic shock [Fatal]
  - Tachycardia [Fatal]
  - Nausea [Not Recovered/Not Resolved]
  - Vomiting [Not Recovered/Not Resolved]
  - Fungal infection [Not Recovered/Not Resolved]

NARRATIVE: CASE EVENT DATE: 20220620
